FAERS Safety Report 8110457-0 (Version None)
Quarter: 2012Q1

REPORT INFORMATION
  Report Type: 
  Country: None (occurrence: None)
  Receive Date: 20120202
  Receipt Date: 20120124
  Transmission Date: 20120608
  Serious: Yes (Hospitalization)
  Sender: FDA-Public Use
  Company Number: JP-TEVA-2011004124

PATIENT
  Age: 51 Year
  Sex: Male

DRUGS (3)
  1. BENDAMUSTINE [Suspect]
     Route: 042
     Dates: start: 20110421, end: 20110422
  2. BENDAMUSTINE [Suspect]
     Indication: B-CELL LYMPHOMA
     Route: 042
     Dates: start: 20110222, end: 20110223
  3. BENDAMUSTINE [Suspect]
     Route: 042
     Dates: start: 20110315, end: 20110316

REACTIONS (5)
  - DIARRHOEA [None]
  - CYTOMEGALOVIRUS INFECTION [None]
  - ENTEROCOLITIS [None]
  - HEPATITIS [None]
  - RETINITIS [None]
